FAERS Safety Report 11394719 (Version 2)
Quarter: 2016Q1

REPORT INFORMATION
  Report Type: Spontaneous
  Country: NL (occurrence: NL)
  Receive Date: 20150819
  Receipt Date: 20160203
  Transmission Date: 20160525
  Serious: Yes (Other)
  Sender: FDA-Public Use
  Company Number: NL-SA-2015SA121895

PATIENT
  Age: 3 Year
  Sex: Male
  Weight: 16.6 kg

DRUGS (4)
  1. METHOTREXATE [Concomitant]
     Active Substance: METHOTREXATE
     Indication: IMMUNOMODULATORY THERAPY
     Dosage: WEEKLY AFTER THE INFUSION
     Route: 042
     Dates: start: 20120913
  2. TAVEGYL [Concomitant]
     Active Substance: CLEMASTINE FUMARATE
     Indication: PREMEDICATION
     Dosage: 1MG/ML AMPUL: 2ML
     Route: 042
     Dates: start: 20150713
  3. PARACETAMOL [Concomitant]
     Active Substance: ACETAMINOPHEN
     Indication: PREMEDICATION
     Route: 054
     Dates: start: 20150713
  4. MYOZYME [Suspect]
     Active Substance: ALGLUCOSIDASE ALFA
     Indication: GLYCOGEN STORAGE DISEASE TYPE II
     Route: 041
     Dates: start: 20120928, end: 20150713

REACTIONS (8)
  - Tachycardia [Recovered/Resolved]
  - Pyrexia [Unknown]
  - Blood pressure immeasurable [Recovered/Resolved]
  - Crying [Recovered/Resolved]
  - Angina pectoris [Unknown]
  - Chills [Recovered/Resolved]
  - Heart rate irregular [Recovered/Resolved]
  - Malaise [Unknown]

NARRATIVE: CASE EVENT DATE: 201507
